FAERS Safety Report 11270532 (Version 3)
Quarter: 2015Q3

REPORT INFORMATION
  Report Type: Spontaneous
  Country: CN (occurrence: CN)
  Receive Date: 20150714
  Receipt Date: 20150730
  Transmission Date: 20151125
  Serious: Yes (Hospitalization, Other)
  Sender: FDA-Public Use
  Company Number: CN-ASTRAZENECA-2015SE66507

PATIENT
  Age: 59 Year
  Sex: Female

DRUGS (6)
  1. SEROQUEL [Suspect]
     Active Substance: QUETIAPINE FUMARATE
     Indication: INSOMNIA
     Dosage: 0.2G/6 QD
     Route: 048
     Dates: start: 2013, end: 2014
  2. SEROQUEL [Suspect]
     Active Substance: QUETIAPINE FUMARATE
     Indication: INSOMNIA
     Dosage: 0.2G/8 QD
     Route: 048
  3. TCM [Concomitant]
     Active Substance: HERBALS
  4. SEROQUEL [Suspect]
     Active Substance: QUETIAPINE FUMARATE
     Indication: INSOMNIA
     Dosage: 0.2G/10 QD
     Route: 048
  5. WENXIN GRANNLE [Concomitant]
     Dosage: 1 PACKAGE QD
  6. HAOXINREN [Concomitant]
     Indication: CARDIAC DISORDER

REACTIONS (7)
  - Transaminases increased [Unknown]
  - Insomnia [Not Recovered/Not Resolved]
  - Chest discomfort [Unknown]
  - Bone pain [Unknown]
  - Dyspnoea [Unknown]
  - Product use issue [Unknown]
  - Off label use [Unknown]

NARRATIVE: CASE EVENT DATE: 201401
